FAERS Safety Report 5733124-7 (Version None)
Quarter: 2008Q2

REPORT INFORMATION
  Report Type: 
  Country: None (occurrence: None)
  Receive Date: 20080509
  Receipt Date: 20080509
  Transmission Date: 20081010
  Serious: Yes (Life-Threatening)
  Sender: FDA-Public Use
  Company Number: None

PATIENT
  Sex: Male
  Weight: 119 kg

DRUGS (22)
  1. DIMETHYL SULFOXIDE [Suspect]
     Indication: PROPHYLAXIS
     Dosage: 1% IN WASHED STEM CELL PRODUCT ONCE IV DRIP
     Route: 041
     Dates: start: 20080411, end: 20080411
  2. HEPARIN [Suspect]
     Indication: ANTICOAGULANT THERAPY
     Dosage: APPROX 100 USP UNITS/PRODUCTS ONCE IV DRIP
     Route: 041
     Dates: start: 20080411, end: 20080411
  3. MELPHALAN [Concomitant]
  4. ACETAMINOPHEN [Concomitant]
  5. ACYCLOVIR [Concomitant]
  6. BACTRIM [Concomitant]
  7. FLUCONAZOLE [Concomitant]
  8. FOLIC ACID [Concomitant]
  9. MULTI-VITAMIN [Concomitant]
  10. RANITIDINE [Concomitant]
  11. FILGRASTIM [Concomitant]
  12. MYLANTA [Concomitant]
  13. LORAZEPAM [Concomitant]
  14. DOCUSATE [Concomitant]
  15. CHOLECALCIFEROL [Concomitant]
  16. GABAPENTIN [Concomitant]
  17. MAGNESIUM [Concomitant]
  18. ACETAMINOPHEN AND HYDROCODONE BITARTRATE [Concomitant]
  19. TERAZOSIN HCL [Concomitant]
  20. LOSARTAN POTASSIUM [Concomitant]
  21. AMLODIPINE [Concomitant]
  22. INSULIN ASPART [Concomitant]

REACTIONS (8)
  - ABDOMINAL PAIN UPPER [None]
  - AMNESIA [None]
  - ANAPHYLACTIC SHOCK [None]
  - ASTHENIA [None]
  - CARDIO-RESPIRATORY ARREST [None]
  - INFUSION RELATED REACTION [None]
  - PAIN [None]
  - SINUS TACHYCARDIA [None]
